FAERS Safety Report 22962903 (Version 6)
Quarter: 2023Q4

REPORT INFORMATION
  Report Type: Spontaneous
  Country: US (occurrence: US)
  Receive Date: 20230920
  Receipt Date: 20231228
  Transmission Date: 20240110
  Serious: No
  Sender: FDA-Public Use
  Company Number: US-PFIZER INC-2020066319

PATIENT
  Age: 79 Year
  Sex: Female

DRUGS (8)
  1. RETACRIT [Suspect]
     Active Substance: EPOETIN ALFA-EPBX
     Indication: Nephrogenic anaemia
     Dosage: 40000 IU, 2X/WEEK
     Route: 058
  2. RETACRIT [Suspect]
     Active Substance: EPOETIN ALFA-EPBX
     Indication: Chronic kidney disease
     Dosage: 60000 IU, 2X/WEEK ON TUESDAYS AND FRIDAYS
  3. RETACRIT [Suspect]
     Active Substance: EPOETIN ALFA-EPBX
     Indication: Myelodysplastic syndrome
     Dosage: 1000 IU/ML
  4. RETACRIT [Suspect]
     Active Substance: EPOETIN ALFA-EPBX
     Dosage: 40000 IU/ML
  5. RETACRIT [Suspect]
     Active Substance: EPOETIN ALFA-EPBX
     Dosage: 60000 IU, 2X/WEEK (SIX ON MONDAY AND SIX ON THURSDAY A TOTAL FOR TWELVE SHOTS A WEEK)
  6. RETACRIT [Suspect]
     Active Substance: EPOETIN ALFA-EPBX
     Dosage: 60000 IU, 2X/WEEK (10000 IU, 6 SHOTS EVERY 3 DAYS)
     Route: 058
  7. RETACRIT [Suspect]
     Active Substance: EPOETIN ALFA-EPBX
     Dosage: 60 IU, 2X/WEEK
  8. RETACRIT [Suspect]
     Active Substance: EPOETIN ALFA-EPBX
     Dosage: 60000 IU, 2X/WEEK

REACTIONS (3)
  - Asthenia [Unknown]
  - Pain [Unknown]
  - Off label use [Unknown]
